FAERS Safety Report 18390108 (Version 3)
Quarter: 2021Q4

REPORT INFORMATION
  Report Type: Report from Study
  Country: BR (occurrence: BR)
  Receive Date: 20201015
  Receipt Date: 20211225
  Transmission Date: 20220303
  Serious: No
  Sender: FDA-Public Use
  Company Number: None

PATIENT
  Age: 21 Year
  Sex: Male
  Weight: 92 kg

DRUGS (10)
  1. COSENTYX [Suspect]
     Active Substance: SECUKINUMAB
     Indication: Psoriasis
     Dosage: 150 MG EVERY 28 DAYS (02 AMPOULES)
     Route: 065
     Dates: start: 20191220
  2. COSENTYX [Suspect]
     Active Substance: SECUKINUMAB
     Dosage: UNK
     Route: 065
     Dates: start: 20200928
  3. COSENTYX [Suspect]
     Active Substance: SECUKINUMAB
     Dosage: 300 UNK
     Route: 065
     Dates: start: 20211202
  4. QUETIAPINE [Concomitant]
     Active Substance: QUETIAPINE
     Indication: Behaviour disorder
     Dosage: 1 DF, BID
     Route: 048
  5. FLUOXETINE [Concomitant]
     Active Substance: FLUOXETINE HYDROCHLORIDE
     Indication: Behaviour disorder
     Dosage: 2 DF, BID
     Route: 048
  6. HYDANTAL [Concomitant]
     Active Substance: MEPHENYTOIN\PHENOBARBITAL
     Indication: Behaviour disorder
     Dosage: 1 DF, BID
     Route: 048
  7. DIAZEPAM [Concomitant]
     Active Substance: DIAZEPAM
     Indication: Behaviour disorder
     Dosage: 1 DF, QD
     Route: 048
  8. LEVOMEPROMAZINE [Concomitant]
     Active Substance: LEVOMEPROMAZINE
     Indication: Behaviour disorder
     Dosage: 40 DROPS ONCE DAILY
     Route: 048
  9. LAMOTRIGINE [Concomitant]
     Active Substance: LAMOTRIGINE
     Indication: Behaviour disorder
     Dosage: 1 DF, BID
     Route: 048
  10. INFLUENZA VIRUS VACCINE [Concomitant]
     Active Substance: INFLUENZA VIRUS VACCINE
     Indication: Product used for unknown indication
     Dosage: UNK
     Route: 065

REACTIONS (6)
  - Gastrointestinal infection [Recovered/Resolved with Sequelae]
  - Mental disorder [Unknown]
  - Pruritus [Unknown]
  - Skin lesion [Not Recovered/Not Resolved]
  - Hepatic steatosis [Not Recovered/Not Resolved]
  - Diarrhoea [Recovered/Resolved with Sequelae]

NARRATIVE: CASE EVENT DATE: 20200501
